FAERS Safety Report 9893065 (Version 1)
Quarter: 2014Q1

REPORT INFORMATION
  Report Type: Spontaneous
  Country: US (occurrence: US)
  Receive Date: 20140213
  Receipt Date: 20140213
  Transmission Date: 20141002
  Serious: No
  Sender: FDA-Public Use
  Company Number: US-009507513-1402USA002313

PATIENT
  Sex: Female

DRUGS (2)
  1. DULERA [Suspect]
     Indication: ASTHMA
     Dosage: ^100/5^ MCG /2 PUFFS IN MORNING, 2 IN EVENING
     Route: 055
     Dates: start: 2013, end: 20140121
  2. COMBIVENT [Concomitant]

REACTIONS (2)
  - Insomnia [Recovered/Resolved]
  - Fatigue [Unknown]
